FAERS Safety Report 10098857 (Version 2)
Quarter: 2014Q2

REPORT INFORMATION
  Report Type: Spontaneous
  Country: FI (occurrence: FI)
  Receive Date: 20140423
  Receipt Date: 20140520
  Transmission Date: 20141212
  Serious: Yes (Hospitalization, Other)
  Sender: FDA-Public Use
  Company Number: FI-ABBVIE-14P-055-1225502-00

PATIENT
  Age: 36 Year
  Sex: Male

DRUGS (22)
  1. HUMIRA [Suspect]
     Indication: RHEUMATOID ARTHRITIS
     Route: 058
     Dates: start: 20111112
  2. HUMIRA [Suspect]
     Indication: ARTHRITIS
     Route: 058
     Dates: end: 20140206
  3. TAZOCIN [Suspect]
     Indication: SINUSITIS
     Route: 042
     Dates: start: 20140204, end: 20140204
  4. GLAZIDIM [Suspect]
     Indication: SINUSITIS
     Dates: start: 20140205
  5. MEROPENEM [Suspect]
     Indication: SINUSITIS
     Dates: start: 20140219
  6. TOBRAMYCIN [Suspect]
     Indication: SINUSITIS
     Route: 042
     Dates: start: 2014, end: 2014
  7. COLOMYCIN [Suspect]
     Indication: PRODUCT USED FOR UNKNOWN INDICATION
     Dates: start: 2014
  8. ARAVA [Concomitant]
     Indication: PRODUCT USED FOR UNKNOWN INDICATION
     Route: 048
     Dates: end: 2014
  9. LOSATRIX [Concomitant]
     Indication: PRODUCT USED FOR UNKNOWN INDICATION
     Dosage: 1/2 - 1 TABLET ONCE A DAY
     Route: 048
     Dates: start: 20130124, end: 20140201
  10. TAMSUMIN [Concomitant]
     Indication: PRODUCT USED FOR UNKNOWN INDICATION
     Route: 048
     Dates: start: 20130821, end: 20131001
  11. KALCIPOS-D [Concomitant]
     Indication: PRODUCT USED FOR UNKNOWN INDICATION
     Route: 048
  12. PREDNISOLONE [Concomitant]
     Indication: PRODUCT USED FOR UNKNOWN INDICATION
  13. PARACETAMOL [Concomitant]
     Indication: PRODUCT USED FOR UNKNOWN INDICATION
  14. TREXAN [Concomitant]
     Indication: PRODUCT USED FOR UNKNOWN INDICATION
     Route: 048
     Dates: start: 20110120, end: 20121010
  15. METOJECT [Concomitant]
     Indication: PRODUCT USED FOR UNKNOWN INDICATION
     Dosage: 10-15 MILLIGRAMS PER WEEK
     Route: 058
     Dates: start: 20121025, end: 20121129
  16. TRIPTYL [Concomitant]
     Indication: PRODUCT USED FOR UNKNOWN INDICATION
     Dosage: 10-50MG PER DAY
     Route: 048
     Dates: start: 20091209
  17. PREDNISOLON [Concomitant]
     Indication: PRODUCT USED FOR UNKNOWN INDICATION
     Dosage: 5-20MG
     Route: 048
  18. LYMECYCLINE [Concomitant]
     Indication: PRODUCT USED FOR UNKNOWN INDICATION
     Route: 048
  19. MELATONIN [Concomitant]
     Indication: PRODUCT USED FOR UNKNOWN INDICATION
     Route: 048
  20. PANACOD [Concomitant]
     Indication: PRODUCT USED FOR UNKNOWN INDICATION
     Route: 048
  21. TEMGESIC [Concomitant]
     Indication: PRODUCT USED FOR UNKNOWN INDICATION
     Dosage: 0.2MG FOR THE NIGHT
     Route: 048
     Dates: end: 20121205
  22. DICLOFENAC SODIUM [Concomitant]
     Indication: PRODUCT USED FOR UNKNOWN INDICATION
     Route: 048

REACTIONS (42)
  - Jaw disorder [Unknown]
  - Mastication disorder [Unknown]
  - Visual field defect [Recovering/Resolving]
  - Eye disorder [Recovering/Resolving]
  - Tinnitus [Recovering/Resolving]
  - Optic neuritis [Recovering/Resolving]
  - Mass [Recovering/Resolving]
  - Dizziness [Recovering/Resolving]
  - Pseudomonas infection [Unknown]
  - Pseudomonas infection [Not Recovered/Not Resolved]
  - Sinusitis [Not Recovered/Not Resolved]
  - Sinusitis aspergillus [Not Recovered/Not Resolved]
  - Headache [Recovering/Resolving]
  - Infection [Recovering/Resolving]
  - Headache [Recovering/Resolving]
  - Acute sinusitis [Recovering/Resolving]
  - Sinus headache [Recovering/Resolving]
  - Sinusitis [Recovering/Resolving]
  - Purulent discharge [Recovering/Resolving]
  - Sinus disorder [Recovering/Resolving]
  - Parosmia [Recovering/Resolving]
  - Purulent discharge [Recovering/Resolving]
  - General physical condition abnormal [Recovering/Resolving]
  - Hypersensitivity [Unknown]
  - Urticaria [Unknown]
  - Dermatitis allergic [Unknown]
  - Pruritus allergic [Unknown]
  - Throat irritation [Unknown]
  - Injection site urticaria [Unknown]
  - Pruritus [Unknown]
  - Anaemia [Unknown]
  - Eye pain [Recovering/Resolving]
  - Rheumatoid arthritis [Unknown]
  - Optic neuritis [Unknown]
  - Pyrexia [Recovering/Resolving]
  - Diaphragmatic hernia [Unknown]
  - Chronic sinusitis [Recovering/Resolving]
  - Sinusitis [Recovering/Resolving]
  - Endoscopy abnormal [Unknown]
  - Erosive duodenitis [Unknown]
  - Angiodysplasia [Unknown]
  - Sinusitis [Recovering/Resolving]
